FAERS Safety Report 6315485-3 (Version None)
Quarter: 2009Q3

REPORT INFORMATION
  Report Type: 
  Country: None (occurrence: None)
  Receive Date: 20090819
  Receipt Date: 20090814
  Transmission Date: 20100115
  Serious: Yes (Other)
  Sender: FDA-Public Use
  Company Number: US-ABBOTT-09P-163-0591613-00

PATIENT

DRUGS (1)
  1. HUMIRA [Suspect]
     Indication: PSORIASIS

REACTIONS (2)
  - MALIGNANT MELANOMA [None]
  - SKIN CANCER [None]
